FAERS Safety Report 25765070 (Version 3)
Quarter: 2025Q4

REPORT INFORMATION
  Report Type: Spontaneous
  Country: EU (occurrence: EU)
  Receive Date: 20250905
  Receipt Date: 20251003
  Transmission Date: 20260117
  Serious: Yes (Other)
  Sender: ROCHE
  Company Number: EU-CHEPLA-2025010257

PATIENT
  Age: 36 Week

DRUGS (3)
  1. VALGANCICLOVIR [Suspect]
     Active Substance: VALGANCICLOVIR
     Indication: Congenital cytomegalovirus infection
     Dosage: Q12H
     Route: 065
  2. GANCICLOVIR [Suspect]
     Active Substance: GANCICLOVIR
     Indication: Congenital cytomegalovirus infection
     Route: 042
  3. FOSCARNET [Suspect]
     Active Substance: FOSCARNET
     Indication: Congenital cytomegalovirus infection
     Dosage: 180 MG/ KG/D, DIVIDED IN 3 DOSES
     Route: 065

REACTIONS (8)
  - Thrombocytopenia [Unknown]
  - Neutropenia [Unknown]
  - Anaemia [Unknown]
  - Hepatic enzyme increased [Unknown]
  - Drug resistance mutation [Recovering/Resolving]
  - Off label use [Unknown]
  - Hepatotoxicity [Unknown]
  - Myelosuppression [Unknown]
